FAERS Safety Report 9771655 (Version 1)
Quarter: 2013Q4

REPORT INFORMATION
  Report Type: Spontaneous
  Country: US (occurrence: US)
  Receive Date: 20131219
  Receipt Date: 20131219
  Transmission Date: 20140711
  Serious: No
  Sender: FDA-Public Use
  Company Number: US-BIOGENIDEC-2013BI119332

PATIENT
  Age: 66 Year
  Sex: Female

DRUGS (4)
  1. AVONEX [Suspect]
     Indication: MULTIPLE SCLEROSIS
     Route: 030
     Dates: start: 201310, end: 2013
  2. AVONEX [Suspect]
     Indication: MULTIPLE SCLEROSIS
     Route: 030
     Dates: start: 2013
  3. TECFIDERA [Concomitant]
     Indication: MULTIPLE SCLEROSIS
  4. PREDNISONE [Concomitant]
     Indication: SWELLING FACE

REACTIONS (2)
  - Exposure via direct contact [Recovered/Resolved]
  - Drug dose omission [Recovered/Resolved]
